FAERS Safety Report 7802684 (Version 3)
Quarter: 2014Q2

REPORT INFORMATION
  Report Type: Spontaneous
  Country: US (occurrence: US)
  Receive Date: 20110207
  Receipt Date: 20140408
  Transmission Date: 20141212
  Serious: Yes (Hospitalization)
  Sender: FDA-Public Use
  Company Number: US-B.I. PHARMACEUTICALS,INC./RIDGEFIELD-2011-BP-02166BP

PATIENT
  Sex: Male
  Weight: 86 kg

DRUGS (19)
  1. PRADAXA [Suspect]
     Indication: PRODUCT USED FOR UNKNOWN INDICATION
     Route: 065
     Dates: start: 201101, end: 201103
  2. LISINOPRIL [Concomitant]
     Dosage: 40 MG
     Route: 048
  3. PRAVACHOL [Concomitant]
     Dosage: 40 MG
     Route: 048
  4. AMITRIPTYLINE [Concomitant]
     Route: 065
  5. KETOCONAZOLE [Concomitant]
     Dosage: 1200 MG
     Route: 048
  6. HYDROCORTISONE [Concomitant]
     Route: 048
  7. AMOXICILLIN [Concomitant]
     Route: 065
  8. ZOLADEX [Concomitant]
     Route: 065
  9. ASPIRIN LOW [Concomitant]
     Dosage: 81 MG
     Route: 048
  10. OXYCODONE [Concomitant]
     Indication: PAIN
     Route: 048
  11. VITAMIN B [Concomitant]
     Route: 065
  12. FUROSEMIDE [Concomitant]
     Dosage: 20 MG
     Route: 048
  13. ACETAMINOPHEN-HYDROCODONE [Concomitant]
     Route: 048
  14. OMEGA [Concomitant]
     Route: 065
  15. POTASSIUM [Concomitant]
     Route: 065
  16. COL-RITE [Concomitant]
     Route: 065
  17. LABETALOL [Concomitant]
     Dosage: 600 MG
     Route: 048
  18. AMBIEN [Concomitant]
     Route: 065
  19. CACITROL [Concomitant]
     Dosage: 10 MCG
     Route: 065

REACTIONS (5)
  - Upper gastrointestinal haemorrhage [Recovered/Resolved]
  - Acute myocardial infarction [Unknown]
  - Anaemia [Unknown]
  - Thrombocytopenia [Unknown]
  - Adverse drug reaction [Unknown]
